FAERS Safety Report 16431395 (Version 2)
Quarter: 2019Q3

REPORT INFORMATION
  Report Type: Report from Study
  Country: US (occurrence: US)
  Receive Date: 20190614
  Receipt Date: 20190726
  Transmission Date: 20191004
  Serious: Yes (Other)
  Sender: FDA-Public Use
  Company Number: US-BAYER-2019-110091

PATIENT
  Age: 86 Year
  Sex: Male

DRUGS (3)
  1. XOFIGO [Suspect]
     Active Substance: RADIUM RA-223 DICHLORIDE
     Indication: HORMONE-REFRACTORY PROSTATE CANCER
     Dosage: 87.90 UCI, ONCE EVERY 28 DAYS
     Route: 042
     Dates: start: 20190424, end: 2019
  2. MORPHINE [Concomitant]
     Active Substance: MORPHINE
  3. NORCO [Concomitant]
     Active Substance: ACETAMINOPHEN\HYDROCODONE BITARTRATE

REACTIONS (2)
  - Musculoskeletal pain [None]
  - Anaemia [None]

NARRATIVE: CASE EVENT DATE: 2019
